FAERS Safety Report 9470639 (Version 1)
Quarter: 2013Q3

REPORT INFORMATION
  Report Type: Spontaneous
  Country: US (occurrence: US)
  Receive Date: 20130822
  Receipt Date: 20130822
  Transmission Date: 20140515
  Serious: No
  Sender: FDA-Public Use
  Company Number: US-PFIZER INC-2013243017

PATIENT
  Age: 42 Year
  Sex: Male
  Weight: 90.7 kg

DRUGS (6)
  1. DILANTIN [Suspect]
     Indication: CONVULSION
     Dosage: 300 MG (BY TAKING 3 CAPSULES OF 100 MG), 1X/DAY
     Route: 048
     Dates: start: 201304
  2. DILANTIN [Suspect]
     Dosage: UNK
     Route: 048
  3. DILANTIN [Suspect]
     Dosage: UNK
  4. SEROQUEL [Concomitant]
     Dosage: UNK
  5. REMERON [Concomitant]
     Dosage: UNK
  6. TRILAFON [Concomitant]
     Dosage: UNK

REACTIONS (1)
  - Drug screen false positive [Unknown]
